FAERS Safety Report 5974866-8 (Version None)
Quarter: 2008Q4

REPORT INFORMATION
  Report Type: 
  Country: None (occurrence: None)
  Receive Date: 20081202
  Receipt Date: 20081126
  Transmission Date: 20090506
  Serious: Yes (Other)
  Sender: FDA-Public Use
  Company Number: AU-PFIZER INC-2008098392

PATIENT
  Age: 45 Year
  Sex: Male

DRUGS (3)
  1. CHAMPIX [Suspect]
     Indication: SMOKING CESSATION THERAPY
  2. AROPAX [Concomitant]
  3. DIAZEPAM [Concomitant]

REACTIONS (11)
  - AGGRESSION [None]
  - DEPRESSION [None]
  - FEELINGS OF WORTHLESSNESS [None]
  - INSOMNIA [None]
  - MALAISE [None]
  - NAUSEA [None]
  - NERVOUSNESS [None]
  - SELF-INJURIOUS IDEATION [None]
  - SOCIAL PROBLEM [None]
  - SUICIDAL IDEATION [None]
  - UNEVALUABLE EVENT [None]
